FAERS Safety Report 6182341-3 (Version None)
Quarter: 2009Q2

REPORT INFORMATION
  Report Type: 
  Country: None (occurrence: None)
  Receive Date: 20090505
  Receipt Date: 20090505
  Transmission Date: 20091009
  Serious: Yes (Hospitalization)
  Sender: FDA-Public Use
  Company Number: None

PATIENT
  Age: 39 Year
  Sex: Female
  Weight: 97.5234 kg

DRUGS (1)
  1. LEVAQUIN [Suspect]
     Indication: UPPER RESPIRATORY TRACT INFECTION
     Dosage: 1 DAILY PO
     Route: 048
     Dates: start: 20090311, end: 20090321

REACTIONS (3)
  - FEELING COLD [None]
  - PARAESTHESIA [None]
  - TENDONITIS [None]
